FAERS Safety Report 13075229 (Version 1)
Quarter: 2016Q4

REPORT INFORMATION
  Report Type: Spontaneous
  Country: US (occurrence: US)
  Receive Date: 20161229
  Receipt Date: 20161229
  Transmission Date: 20170207
  Serious: Yes (Other)
  Sender: FDA-Public Use
  Company Number: None

PATIENT
  Age: 73 Year
  Sex: Male
  Weight: 86.26 kg

DRUGS (1)
  1. ARMODAFINIL. [Suspect]
     Active Substance: ARMODAFINIL
     Indication: POOR QUALITY SLEEP
     Dosage: QUANTITY:1 PILL;?
     Route: 048
     Dates: start: 20161125, end: 20161211

REACTIONS (5)
  - Pruritus [None]
  - Skin exfoliation [None]
  - Product substitution issue [None]
  - Oral mucosal blistering [None]
  - Blister [None]

NARRATIVE: CASE EVENT DATE: 20161125
